FAERS Safety Report 4811485-0 (Version None)
Quarter: 2005Q4

REPORT INFORMATION
  Report Type: 
  Country: None (occurrence: None)
  Receive Date: 20051025
  Receipt Date: 20051012
  Transmission Date: 20060501
  Serious: Yes (Hospitalization)
  Sender: FDA-Public Use
  Company Number: HQWYE038614OCT05

PATIENT
  Age: 19 Year
  Sex: Female

DRUGS (1)
  1. MINOCIN [Suspect]
     Indication: PNEUMONIA MYCOPLASMAL

REACTIONS (10)
  - BLOOD IMMUNOGLOBULIN E INCREASED [None]
  - CSF VIRUS IDENTIFIED [None]
  - DEPRESSED LEVEL OF CONSCIOUSNESS [None]
  - HUMAN HERPES VIRUS 6 SEROLOGY POSITIVE [None]
  - HYPERSENSITIVITY [None]
  - LIVER DISORDER [None]
  - NUCLEAR MAGNETIC RESONANCE IMAGING BRAIN ABNORMAL [None]
  - PARESIS [None]
  - POLYMERASE CHAIN REACTION [None]
  - PYREXIA [None]
